FAERS Safety Report 20189724 (Version 1)
Quarter: 2021Q4

REPORT INFORMATION
  Report Type: Report from Study
  Country: FR (occurrence: FR)
  Receive Date: 20211215
  Receipt Date: 20211215
  Transmission Date: 20220303
  Serious: Yes (Other)
  Sender: FDA-Public Use
  Company Number: FR-JNJFOC-20211056631

PATIENT
  Age: 61 Year
  Sex: Male

DRUGS (3)
  1. DEXAMETHASONE [Suspect]
     Active Substance: DEXAMETHASONE
     Indication: Plasma cell myeloma
     Dosage: 20 MILLIGRAM, QW (3 WEEK(S)/CYCLE)
     Route: 065
     Dates: end: 20190219
  2. LENALIDOMIDE [Suspect]
     Active Substance: LENALIDOMIDE
     Indication: Plasma cell myeloma
     Dosage: 175 MILLIGRAM, QW (2 WEEK(S)/CYCLE)
     Route: 065
     Dates: end: 20190219
  3. VELCADE [Suspect]
     Active Substance: BORTEZOMIB
     Indication: Plasma cell myeloma
     Dosage: 2.6 MILLIGRAM/SQ. METER, QW (2 WEEK(S)/CYCLE)
     Route: 065
     Dates: end: 20190219

REACTIONS (1)
  - Neuropathy peripheral [Not Recovered/Not Resolved]
